FAERS Safety Report 7357325-X (Version None)
Quarter: 2011Q1

REPORT INFORMATION
  Report Type: 
  Country: None (occurrence: None)
  Receive Date: 20110317
  Receipt Date: 20110311
  Transmission Date: 20110831
  Serious: Yes (Hospitalization)
  Sender: FDA-Public Use
  Company Number: GB-ABBOTT-11P-167-0704070-00

PATIENT
  Sex: Male
  Weight: 62 kg

DRUGS (4)
  1. HUMIRA [Suspect]
     Indication: ANKYLOSING SPONDYLITIS
  2. METHOTREXATE [Concomitant]
     Indication: PRODUCT USED FOR UNKNOWN INDICATION
     Dates: start: 19950315, end: 20090715
  3. CYSLOSPORIN [Concomitant]
     Indication: PRODUCT USED FOR UNKNOWN INDICATION
     Dates: start: 19950315, end: 20070703
  4. HUMIRA [Suspect]
     Indication: RHEUMATOID ARTHRITIS
     Route: 058
     Dates: start: 20060830

REACTIONS (1)
  - RENAL FAILURE ACUTE [None]
